FAERS Safety Report 6238177-8 (Version None)
Quarter: 2009Q2

REPORT INFORMATION
  Report Type: 
  Country: None (occurrence: None)
  Receive Date: 20090622
  Receipt Date: 20090602
  Transmission Date: 20091009
  Serious: Yes (Hospitalization, Other)
  Sender: FDA-Public Use
  Company Number: DE-BAXTER-2009BH008722

PATIENT
  Age: 50 Year
  Sex: Female

DRUGS (26)
  1. DIANEAL [Suspect]
     Indication: PERITONEAL DIALYSIS
     Route: 033
     Dates: start: 20090413
  2. DIANEAL [Suspect]
     Indication: GLOMERULONEPHRITIS
     Route: 033
     Dates: start: 20090413
  3. DIANEAL [Suspect]
     Route: 033
     Dates: start: 20090414
  4. DIANEAL [Suspect]
     Route: 033
     Dates: start: 20090414
  5. DIANEAL [Suspect]
     Route: 033
     Dates: start: 20090416, end: 20090419
  6. DIANEAL [Suspect]
     Route: 033
     Dates: start: 20090416, end: 20090419
  7. DIANEAL [Suspect]
     Route: 033
     Dates: start: 20090415
  8. DIANEAL [Suspect]
     Route: 033
     Dates: start: 20090415
  9. DIANEAL [Suspect]
     Route: 033
     Dates: start: 20090420, end: 20090421
  10. DIANEAL [Suspect]
     Route: 033
     Dates: start: 20090420, end: 20090421
  11. DIANEAL [Suspect]
     Route: 033
     Dates: start: 20090422, end: 20090422
  12. DIANEAL [Suspect]
     Route: 033
     Dates: start: 20090422, end: 20090422
  13. DIANEAL [Suspect]
     Route: 033
     Dates: start: 20090423, end: 20090423
  14. DIANEAL [Suspect]
     Route: 033
     Dates: start: 20090423, end: 20090423
  15. DIANEAL [Suspect]
     Route: 033
     Dates: start: 20090424, end: 20090428
  16. DIANEAL [Suspect]
     Route: 033
     Dates: start: 20090424, end: 20090428
  17. DIANEAL [Suspect]
     Route: 033
     Dates: start: 20090429, end: 20090430
  18. DIANEAL [Suspect]
     Route: 033
     Dates: start: 20090429, end: 20090430
  19. DIANEAL [Suspect]
     Route: 033
     Dates: start: 20090501, end: 20090501
  20. DIANEAL [Suspect]
     Route: 033
     Dates: start: 20090501, end: 20090501
  21. DIANEAL [Suspect]
     Route: 033
     Dates: start: 20090502
  22. DIANEAL [Suspect]
     Route: 033
     Dates: start: 20090502
  23. EINSALPHA [Concomitant]
     Indication: HYPOTHYROIDISM
     Route: 048
     Dates: start: 20080301
  24. PROVAS [Concomitant]
     Indication: HYPERTENSION
     Route: 048
     Dates: start: 20080301
  25. FUROSEMIDE [Concomitant]
     Indication: DRUG USE FOR UNKNOWN INDICATION
     Route: 048
     Dates: start: 20080427
  26. TORSEMIDE [Concomitant]
     Indication: DRUG USE FOR UNKNOWN INDICATION
     Route: 048
     Dates: start: 20060101, end: 20090427

REACTIONS (4)
  - MUSCULOSKELETAL CHEST PAIN [None]
  - PERITONITIS [None]
  - PLEURAL EFFUSION [None]
  - RASH GENERALISED [None]
